FAERS Safety Report 4983084-1 (Version None)
Quarter: 2006Q2

REPORT INFORMATION
  Report Type: 
  Country: None (occurrence: None)
  Receive Date: 20060426
  Receipt Date: 20060418
  Transmission Date: 20061013
  Serious: Yes (Other)
  Sender: FDA-Public Use
  Company Number: US-BRISTOL-MYERS SQUIBB COMPANY-13350046

PATIENT
  Age: 63 Year
  Sex: Male
  Weight: 94 kg

DRUGS (15)
  1. METFORMIN HYDROCHLORIDE [Suspect]
     Indication: DIABETES MELLITUS NON-INSULIN-DEPENDENT
  2. AVANDIA [Suspect]
     Indication: DIABETES MELLITUS NON-INSULIN-DEPENDENT
     Route: 048
  3. NORVASC [Suspect]
     Indication: BLOOD PRESSURE
  4. AVODART [Suspect]
     Indication: PROSTATIC DISORDER
     Route: 048
  5. PLACEBO [Suspect]
     Indication: PROSTATIC DISORDER
     Route: 048
  6. LOTENSIN [Concomitant]
  7. ZOCOR [Concomitant]
  8. DIOVAN [Concomitant]
  9. STARLIX [Concomitant]
  10. FLOMAX [Concomitant]
  11. VITAMINS [Concomitant]
  12. ASPIRIN [Concomitant]
  13. METAMUCIL [Concomitant]
  14. MAGNESIUM CITRATE [Concomitant]
  15. MINERAL TAB [Concomitant]

REACTIONS (21)
  - ABDOMINAL DISTENSION [None]
  - ADVERSE EVENT [None]
  - ALOPECIA [None]
  - BLOOD GLUCOSE FLUCTUATION [None]
  - COUGH [None]
  - EJACULATION DISORDER [None]
  - ERECTILE DYSFUNCTION [None]
  - FLUID RETENTION [None]
  - GYNAECOMASTIA [None]
  - HAIR GROWTH ABNORMAL [None]
  - LACRIMATION INCREASED [None]
  - LIBIDO DECREASED [None]
  - MULTIPLE ALLERGIES [None]
  - NASOPHARYNGEAL DISORDER [None]
  - NEUROPATHY [None]
  - SEMEN DISCOLOURATION [None]
  - SINUS DISORDER [None]
  - SWELLING [None]
  - THROAT IRRITATION [None]
  - VISUAL DISTURBANCE [None]
  - WEIGHT INCREASED [None]
